FAERS Safety Report 10549542 (Version 1)
Quarter: 2014Q4

REPORT INFORMATION
  Report Type: Spontaneous
  Country: US (occurrence: None)
  Receive Date: 20141020
  Receipt Date: 20141020
  Transmission Date: 20150529
  Serious: No
  Sender: FDA-Public Use
  Company Number: AEGR000670

PATIENT
  Age: 55 Year
  Sex: Male
  Weight: 70.3 kg

DRUGS (7)
  1. JUXTAPID [Suspect]
     Active Substance: LOMITAPIDE MESYLATE
     Indication: TYPE IIA HYPERLIPIDAEMIA
     Route: 048
     Dates: start: 201305
  2. VICODIN [Concomitant]
     Active Substance: ACETAMINOPHEN\HYDROCODONE BITARTRATE
  3. BABY ASPIRIN (ACETYLSALICYLIC ACID) [Concomitant]
     Active Substance: ASPIRIN
  4. VALIUM [Concomitant]
     Active Substance: DIAZEPAM
  5. DITROPAN XL (OXYBUTYNIN HYDROCHLORIDE) [Concomitant]
  6. ZANAFLEX [Concomitant]
     Active Substance: TIZANIDINE HYDROCHLORIDE
  7. COUMADIN [Concomitant]
     Active Substance: WARFARIN SODIUM

REACTIONS (2)
  - Chills [None]
  - Urinary tract infection [None]

NARRATIVE: CASE EVENT DATE: 20140723
